FAERS Safety Report 16769692 (Version 2)
Quarter: 2019Q3

REPORT INFORMATION
  Report Type: Report from Study
  Country: CO (occurrence: CO)
  Receive Date: 20190903
  Receipt Date: 20190930
  Transmission Date: 20191005
  Serious: Yes (Other)
  Sender: FDA-Public Use
  Company Number: PHHY2019CO204406

PATIENT
  Age: 58 Year
  Sex: Female
  Weight: 75 kg

DRUGS (1)
  1. COSENTYX [Suspect]
     Active Substance: SECUKINUMAB
     Indication: PSORIATIC ARTHROPATHY
     Dosage: 300 MG, QMO
     Route: 058
     Dates: start: 20190425

REACTIONS (9)
  - Choking [Unknown]
  - Fatigue [Unknown]
  - Macule [Unknown]
  - Wheezing [Unknown]
  - Blood glucose increased [Unknown]
  - Back pain [Unknown]
  - Chest pain [Not Recovered/Not Resolved]
  - Blood triglycerides increased [Unknown]
  - Depressed mood [Unknown]

NARRATIVE: CASE EVENT DATE: 201907
